FAERS Safety Report 17358754 (Version 1)
Quarter: 2020Q1

REPORT INFORMATION
  Report Type: Spontaneous
  Country: US (occurrence: US)
  Receive Date: 20200201
  Receipt Date: 20200201
  Transmission Date: 20200409
  Serious: No
  Sender: FDA-Public Use
  Company Number: US-LANNETT COMPANY, INC.-US-2019LAN001063

PATIENT
  Sex: Male

DRUGS (8)
  1. BACLOFEN (20MG) [Suspect]
     Active Substance: BACLOFEN
     Dosage: 10 MG, BID
     Route: 048
  2. ASPIRIN                            /00002701/ [Concomitant]
     Active Substance: ASPIRIN
     Indication: PRODUCT USED FOR UNKNOWN INDICATION
     Dosage: 325 MG, QD
  3. PRAVASTATIN. [Concomitant]
     Active Substance: PRAVASTATIN
     Indication: BLOOD CHOLESTEROL INCREASED
     Dosage: 80 MG, QD
  4. TRIAMTERENE HCTZ [Concomitant]
     Active Substance: HYDROCHLOROTHIAZIDE\TRIAMTERENE
     Indication: HYPERTENSION
     Dosage: 37.5 MG, QD
  5. VITAMIN D3 [Concomitant]
     Active Substance: CHOLECALCIFEROL
     Indication: PRODUCT USED FOR UNKNOWN INDICATION
     Dosage: 1000 IU, UNK
  6. BACLOFEN (20MG) [Suspect]
     Active Substance: BACLOFEN
     Indication: POST-ANOXIC MYOCLONUS
     Dosage: 20 MG, TID
     Route: 048
     Dates: start: 2017, end: 2017
  7. BACLOFEN (20MG) [Suspect]
     Active Substance: BACLOFEN
     Dosage: 10 MG, TID
     Route: 048
     Dates: start: 2018
  8. LOSARTAN. [Concomitant]
     Active Substance: LOSARTAN
     Indication: HYPERTENSION
     Dosage: 50 MG, TAKES IN THE EVENING

REACTIONS (4)
  - Dysarthria [Not Recovered/Not Resolved]
  - Somnolence [Recovered/Resolved]
  - Drug ineffective [Unknown]
  - Intentional dose omission [Unknown]

NARRATIVE: CASE EVENT DATE: 2017
